FAERS Safety Report 8300487-8 (Version None)
Quarter: 2012Q2

REPORT INFORMATION
  Report Type: 
  Country: None (occurrence: None)
  Receive Date: 20120417
  Receipt Date: 20120404
  Transmission Date: 20120825
  Serious: Yes (Death, Life-Threatening, Hospitalization, Other)
  Sender: FDA-Public Use
  Company Number: 2012MA004456

PATIENT
  Sex: Male
  Weight: 70.3075 kg

DRUGS (55)
  1. PRACVACHOL [Concomitant]
  2. HEPARIN [Concomitant]
  3. PROTONIX [Concomitant]
  4. PROPOXYPHENE HYDROCHLORIDE [Concomitant]
  5. CLONIDINE [Concomitant]
  6. ADVAIR DISKUS 100/50 [Concomitant]
  7. TPN [Concomitant]
  8. SPIRIVA [Concomitant]
  9. MUCINEX [Concomitant]
  10. FERROUS SULFATE TAB [Concomitant]
  11. DILAUDID [Concomitant]
  12. MYLICON [Concomitant]
  13. CAPSOFUNGIN [Concomitant]
  14. ASPIRIN [Concomitant]
  15. ALBUTEROL [Concomitant]
  16. NITROGLYCERIN [Concomitant]
  17. EPOGEN [Concomitant]
  18. SANTYL [Concomitant]
  19. REMICADE [Concomitant]
  20. FLOVENT [Concomitant]
  21. PHOSLO [Concomitant]
  22. ZOSYN [Concomitant]
  23. EPOGEN [Concomitant]
  24. DIGOXIN [Suspect]
     Dosage: 0.125 MG;QD;PO
     Route: 048
     Dates: start: 20050131, end: 20080601
  25. LOVASTATIN [Concomitant]
  26. FOLIC ACID [Concomitant]
  27. IMURAN [Concomitant]
  28. PLAVIX [Concomitant]
  29. ALDACTONE [Concomitant]
  30. ATROVENT [Concomitant]
  31. TERAZOSIN HCL [Concomitant]
  32. PHENERGAN HCL [Concomitant]
  33. LASIX [Concomitant]
  34. COREG [Concomitant]
  35. NORVASC [Concomitant]
  36. RENEGEL [Concomitant]
  37. CODEINE [Concomitant]
  38. PROCRIT [Concomitant]
  39. TOBRAMCYIN [Concomitant]
  40. LISINOPRIL [Concomitant]
  41. TYLENOL (CAPLET) [Concomitant]
  42. ASTELIN [Concomitant]
  43. CYANOCOBALAMIN [Concomitant]
  44. NASACORT [Concomitant]
  45. LEVOPHED [Concomitant]
  46. AEROSOLS [Concomitant]
  47. COUMADIN [Concomitant]
  48. CALCIUM CARBONATE [Concomitant]
  49. METROGEL [Concomitant]
  50. FLONASE [Concomitant]
  51. DOXYCYCLINE [Concomitant]
  52. AMOXICILLIN [Concomitant]
  53. LEVAQUIN [Concomitant]
  54. BICARBONATE [Concomitant]
  55. CAPOTEN [Concomitant]

REACTIONS (79)
  - ANXIETY [None]
  - DYSPNOEA EXERTIONAL [None]
  - SINUSITIS [None]
  - ARTHRALGIA [None]
  - SLEEP DISORDER [None]
  - CORONARY ARTERY DISEASE [None]
  - ATRIAL FIBRILLATION [None]
  - HIATUS HERNIA [None]
  - BLOOD PRESSURE INADEQUATELY CONTROLLED [None]
  - PAIN IN EXTREMITY [None]
  - DYSKINESIA [None]
  - CARDIAC FAILURE CONGESTIVE [None]
  - LEFT VENTRICULAR DYSFUNCTION [None]
  - CHEST DISCOMFORT [None]
  - ASTHENIA [None]
  - HYPERTENSION [None]
  - ATRIAL FLUTTER [None]
  - PROTEINURIA [None]
  - ROSACEA [None]
  - INTESTINAL ISCHAEMIA [None]
  - CARDIO-RESPIRATORY ARREST [None]
  - ISCHAEMIC CARDIOMYOPATHY [None]
  - SEPTIC SHOCK [None]
  - ECCHYMOSIS [None]
  - EAR CONGESTION [None]
  - ORTHOPNOEA [None]
  - DYSPNOEA PAROXYSMAL NOCTURNAL [None]
  - BLOOD DISORDER [None]
  - VERTIGO POSITIONAL [None]
  - PNEUMONIA [None]
  - CEREBROVASCULAR ACCIDENT [None]
  - CHRONIC OBSTRUCTIVE PULMONARY DISEASE [None]
  - ANAEMIA MACROCYTIC [None]
  - ACQUIRED OESOPHAGEAL WEB [None]
  - DYSPHAGIA [None]
  - PROSTATE CANCER [None]
  - URINARY HESITATION [None]
  - TREMOR [None]
  - DIZZINESS [None]
  - RESPIRATORY FAILURE [None]
  - SMALL INTESTINAL OBSTRUCTION [None]
  - PAIN [None]
  - HEADACHE [None]
  - CARDIOMYOPATHY [None]
  - COUGH [None]
  - PULMONARY CONGESTION [None]
  - OESOPHAGEAL DISORDER [None]
  - ARRHYTHMIA [None]
  - MUSCULOSKELETAL CHEST PAIN [None]
  - WHEEZING [None]
  - DEPRESSION [None]
  - DRY MOUTH [None]
  - NORMOCHROMIC NORMOCYTIC ANAEMIA [None]
  - RENAL FAILURE CHRONIC [None]
  - ABDOMINAL DISTENSION [None]
  - ANAEMIA HAEMOLYTIC AUTOIMMUNE [None]
  - HAEMATURIA [None]
  - BACK PAIN [None]
  - INTESTINAL INFARCTION [None]
  - PALPITATIONS [None]
  - WEIGHT DECREASED [None]
  - RHEUMATOID ARTHRITIS [None]
  - PERNICIOUS ANAEMIA [None]
  - PROSTATE CANCER STAGE II [None]
  - PROSTATE CANCER METASTATIC [None]
  - BRONCHITIS [None]
  - HYPERPARATHYROIDISM [None]
  - CARDIAC DISORDER [None]
  - CHEST PAIN [None]
  - DYSLIPIDAEMIA [None]
  - RENAL FAILURE [None]
  - OEDEMA PERIPHERAL [None]
  - PYREXIA [None]
  - TACHYPNOEA [None]
  - ARTERIOSCLEROSIS CORONARY ARTERY [None]
  - URINE FLOW DECREASED [None]
  - POLLAKIURIA [None]
  - MICTURITION URGENCY [None]
  - METABOLIC ACIDOSIS [None]
